FAERS Safety Report 5167339-6 (Version None)
Quarter: 2006Q4

REPORT INFORMATION
  Report Type: 
  Country: None (occurrence: None)
  Receive Date: 20061130
  Receipt Date: 20061117
  Transmission Date: 20070319
  Serious: Yes (Other)
  Sender: FDA-Public Use
  Company Number: 232765

PATIENT
  Age: 41 Year
  Sex: Female
  Weight: 94.3 kg

DRUGS (11)
  1. AVASTIN [Suspect]
     Indication: COLORECTAL CANCER METASTATIC
     Dosage: SEE IMAGE
     Route: 042
     Dates: start: 20061004
  2. AVASTIN [Suspect]
     Indication: COLORECTAL CANCER METASTATIC
     Dosage: SEE IMAGE
     Route: 042
     Dates: start: 20061018
  3. OXALIPLATIN [Suspect]
     Indication: COLORECTAL CANCER METASTATIC
     Dosage: 172 MG, Q2W, INTRAVENOUS
     Route: 042
     Dates: start: 20061004
  4. FLUOROURACIL [Suspect]
     Indication: NEOPLASM MALIGNANT
     Dosage: 5650 MG, Q2W, INTRAVENOUS
     Route: 042
     Dates: start: 20061004
  5. LEUCOVORIN CALCIUM [Suspect]
     Indication: COLORECTAL CANCER METASTATIC
     Dosage: 808 MG, Q2W, INTRAVENOUS
     Route: 042
     Dates: start: 20061004
  6. NEXIUM [Concomitant]
  7. ZELNORM [Concomitant]
  8. ULTRACET (ACETAMINOPHEN, TRAMADOL HYDROCHLORIDE) [Concomitant]
  9. MAXALT [Concomitant]
  10. OXYCODONE HCL [Concomitant]
  11. LUNESTA [Concomitant]

REACTIONS (7)
  - DRUG ERUPTION [None]
  - HYPERSENSITIVITY [None]
  - LYMPHOCYTE PERCENTAGE DECREASED [None]
  - MONOCYTE PERCENTAGE INCREASED [None]
  - NEUTROPHIL PERCENTAGE INCREASED [None]
  - RASH GENERALISED [None]
  - WHITE BLOOD CELL COUNT INCREASED [None]
